FAERS Safety Report 9774308 (Version 2)
Quarter: 2014Q1

REPORT INFORMATION
  Report Type: Spontaneous
  Country: US (occurrence: US)
  Receive Date: 20131220
  Receipt Date: 20140304
  Transmission Date: 20141002
  Serious: No
  Sender: FDA-Public Use
  Company Number: US-B.I. PHARMACEUTICALS,INC./RIDGEFIELD-2013-BI-40191BP

PATIENT
  Age: 62 Year
  Sex: Female

DRUGS (8)
  1. COMBIVENT [Suspect]
     Indication: ASTHMA
     Dosage: STRENGTH: 20 MCG / 100 MCG; DAILY DOSE: 40MCG/200MG
     Route: 055
     Dates: start: 201306
  2. BENICAR [Concomitant]
     Indication: HYPERTENSION
     Route: 065
  3. PULMICORT [Concomitant]
     Indication: ASTHMA
     Route: 065
  4. CRESTOR [Concomitant]
     Route: 065
  5. ALBUTEROL [Concomitant]
     Route: 065
  6. PREVACID [Concomitant]
     Indication: GASTROOESOPHAGEAL REFLUX DISEASE
     Dosage: (CAPSULE) STRENGTH: 30;
     Route: 065
  7. ASA [Concomitant]
     Dosage: DOSE PER APPLICATION: 81
     Route: 065
  8. NITRO [Concomitant]
     Route: 065

REACTIONS (2)
  - Asthma [Recovered/Resolved]
  - Off label use [Not Recovered/Not Resolved]
